FAERS Safety Report 25462306 (Version 1)
Quarter: 2025Q2

REPORT INFORMATION
  Report Type: Spontaneous
  Country: IL (occurrence: IL)
  Receive Date: 20250620
  Receipt Date: 20250620
  Transmission Date: 20250717
  Serious: Yes (Death, Life-Threatening, Other)
  Sender: GILEAD
  Company Number: IL-GILEAD-2025-0717386

PATIENT
  Age: 50 Year
  Sex: Female

DRUGS (1)
  1. TRODELVY [Suspect]
     Active Substance: SACITUZUMAB GOVITECAN-HZIY
     Indication: Product used for unknown indication
     Route: 065
     Dates: start: 20250611

REACTIONS (4)
  - Infusion related reaction [Fatal]
  - Seizure [Unknown]
  - Dyspnoea [Unknown]
  - Chest pain [Unknown]
